FAERS Safety Report 15967742 (Version 2)
Quarter: 2019Q1

REPORT INFORMATION
  Report Type: Report from Study
  Country: US (occurrence: US)
  Receive Date: 20190215
  Receipt Date: 20190308
  Transmission Date: 20190418
  Serious: Yes (Hospitalization)
  Sender: FDA-Public Use
  Company Number: US-PFIZER INC-2019058671

PATIENT
  Age: 8 Year
  Sex: Male
  Weight: 26.5 kg

DRUGS (7)
  1. LEVOFLOXACIN. [Concomitant]
     Active Substance: LEVOFLOXACIN
     Indication: ANTIBIOTIC PROPHYLAXIS
     Dosage: 270 MG, UNK
     Route: 048
     Dates: start: 20190109, end: 20190109
  2. METHOTREXATE. [Concomitant]
     Active Substance: METHOTREXATE
     Indication: CHEMOTHERAPY
     Dosage: 12 MG, UNK
     Route: 037
     Dates: start: 20190108, end: 20190108
  3. INOTUZUMAB OZOGAMICIN [Suspect]
     Active Substance: INOTUZUMAB OZOGAMICIN
     Indication: LYMPHOCYTIC LEUKAEMIA
     Dosage: 1 MG, WEEKLY, IV OVER 60 MINUTES
     Route: 042
     Dates: start: 20190109, end: 20190109
  4. ALLOPURINOL. [Suspect]
     Active Substance: ALLOPURINOL
     Indication: TUMOUR LYSIS SYNDROME
     Dosage: 100 MG, TID
     Route: 048
     Dates: start: 20190107, end: 20190116
  5. BACTRIM [Suspect]
     Active Substance: SULFAMETHOXAZOLE\TRIMETHOPRIM
     Indication: ANTIFUNGAL PROPHYLAXIS
     Dosage: 120 MG, M/W/F
     Route: 048
     Dates: start: 20190111, end: 20190116
  6. INOTUZUMAB OZOGAMICIN [Suspect]
     Active Substance: INOTUZUMAB OZOGAMICIN
     Dosage: CYCLE 1, DAY 8 INFUSION
     Route: 042
     Dates: start: 20190116, end: 20190116
  7. CEFEPIME HCL [Suspect]
     Active Substance: CEFEPIME HYDROCHLORIDE
     Indication: FEBRILE NEUTROPENIA
     Dosage: 1500 MG, Q8HRS
     Route: 042
     Dates: start: 20190110, end: 20190117

REACTIONS (3)
  - Hyperammonaemia [Not Recovered/Not Resolved]
  - Febrile neutropenia [Recovered/Resolved]
  - Drug reaction with eosinophilia and systemic symptoms [Not Recovered/Not Resolved]

NARRATIVE: CASE EVENT DATE: 20190110
